FAERS Safety Report 10142956 (Version 1)
Quarter: 2014Q2

REPORT INFORMATION
  Report Type: Spontaneous
  Country: CN (occurrence: CN)
  Receive Date: 20140430
  Receipt Date: 20140430
  Transmission Date: 20141212
  Serious: Yes (Other)
  Sender: FDA-Public Use
  Company Number: CN-JNJFOC-20140416497

PATIENT
  Sex: 0

DRUGS (2)
  1. TOPIRAMATE [Suspect]
     Indication: INFANTILE SPASMS
     Route: 048
  2. PREDNISONE [Suspect]
     Indication: INFANTILE SPASMS
     Route: 048

REACTIONS (11)
  - Hypertension [Unknown]
  - Pneumonia [Unknown]
  - Diarrhoea [Unknown]
  - Respiratory tract infection [Unknown]
  - Cushing^s syndrome [Unknown]
  - Irritability [Recovered/Resolved]
  - Hypohidrosis [Recovered/Resolved]
  - Weight increased [Unknown]
  - Increased appetite [Unknown]
  - Pyrexia [Recovered/Resolved]
  - Somnolence [Recovered/Resolved]
